FAERS Safety Report 9971378 (Version 1)
Quarter: 2014Q1

REPORT INFORMATION
  Report Type: Spontaneous
  Country: US (occurrence: None)
  Receive Date: 20140304
  Receipt Date: 20140304
  Transmission Date: 20141002
  Serious: Yes (Other)
  Sender: FDA-Public Use
  Company Number: FK201400592

PATIENT
  Age: 38 Year
  Sex: Male

DRUGS (6)
  1. ADENOSINE [Suspect]
     Indication: SUPRAVENTRICULAR TACHYARRHYTHMIA
     Route: 040
  2. ASPIRIN (ACTELYSALICYLIC ACID) [Concomitant]
  3. CLOPIDROGEL (CLOPIDOGREL BISULFARE) [Concomitant]
  4. STATIN (NYSTATIN) [Concomitant]
  5. METOPROLOL (METOPROLOL) [Concomitant]
  6. NITROGLYCERINE (GLYCERYL TRINITRATE) [Concomitant]

REACTIONS (4)
  - Arteriospasm coronary [None]
  - Arrhythmia [None]
  - Bundle branch block right [None]
  - Abscess limb [None]
